FAERS Safety Report 25589941 (Version 1)
Quarter: 2025Q3

REPORT INFORMATION
  Report Type: Spontaneous
  Country: EU (occurrence: EU)
  Receive Date: 20250722
  Receipt Date: 20250722
  Transmission Date: 20251020
  Serious: Yes (Death, Life-Threatening, Hospitalization, Disabling, Other)
  Sender: AUROBINDO
  Company Number: EU-ORGANON-O2505DEU003537

PATIENT
  Age: 26 Year
  Sex: Male

DRUGS (1)
  1. FINASTERIDE [Suspect]
     Active Substance: FINASTERIDE
     Indication: Alopecia
     Dosage: 1 MILLIGRAM, ONCE A DAY (1 MILLIGRAM, QD)
     Route: 048
     Dates: start: 20161201, end: 20180801

REACTIONS (23)
  - Erectile dysfunction [Fatal]
  - Sleep disorder [Fatal]
  - Depression [Fatal]
  - Headache [Fatal]
  - Tension [Fatal]
  - Tremor [Fatal]
  - Influenza like illness [Fatal]
  - Abdominal pain [Fatal]
  - Fungal infection [Fatal]
  - Adverse event [Fatal]
  - Disturbance in attention [Unknown]
  - Back pain [Unknown]
  - Neck pain [Unknown]
  - Pain in jaw [Unknown]
  - Loss of libido [Unknown]
  - Muscle twitching [Unknown]
  - Illness [Unknown]
  - Withdrawal syndrome [Unknown]
  - Confusional state [Unknown]
  - Apathy [Unknown]
  - Fatigue [Unknown]
  - Snoring [Unknown]
  - Product prescribing issue [Unknown]

NARRATIVE: CASE EVENT DATE: 20161201
